FAERS Safety Report 6935979-7 (Version None)
Quarter: 2010Q3

REPORT INFORMATION
  Report Type: 
  Country: None (occurrence: None)
  Receive Date: 20100823
  Receipt Date: 20100819
  Transmission Date: 20110219
  Serious: Yes (Other)
  Sender: FDA-Public Use
  Company Number: US-BRISTOL-MYERS SQUIBB COMPANY-15211311

PATIENT
  Age: 26 Year
  Sex: Female

DRUGS (6)
  1. ORENCIA [Suspect]
     Route: 042
     Dates: start: 20100428
  2. PREDNISONE [Concomitant]
  3. METHOTREXATE [Concomitant]
  4. TRAMADOL [Concomitant]
  5. PLAQUENIL [Concomitant]
  6. REGLAN [Concomitant]

REACTIONS (1)
  - MIGRAINE [None]
